FAERS Safety Report 25605542 (Version 1)
Quarter: 2025Q3

REPORT INFORMATION
  Report Type: Spontaneous
  Country: US (occurrence: US)
  Receive Date: 20250725
  Receipt Date: 20250725
  Transmission Date: 20251021
  Serious: No
  Sender: TEVA
  Company Number: US-TEVA-VS-3354647

PATIENT
  Age: 77 Year
  Sex: Female

DRUGS (2)
  1. PREDNISONE [Suspect]
     Active Substance: PREDNISONE
     Indication: Productive cough
     Dosage: 5 PILLS OF EACH TO TAKE ONCE A DAY
     Route: 065
     Dates: start: 20210809
  2. LEVOFLOXACIN [Suspect]
     Active Substance: LEVOFLOXACIN
     Indication: Productive cough
     Dosage: 5 PILLS OF EACH TO TAKE ONCE A DAY
     Route: 065
     Dates: start: 20210809

REACTIONS (2)
  - Muscle spasms [Unknown]
  - Adverse reaction [Unknown]

NARRATIVE: CASE EVENT DATE: 20210101
